FAERS Safety Report 5746996-7 (Version None)
Quarter: 2008Q2

REPORT INFORMATION
  Report Type: 
  Country: None (occurrence: None)
  Receive Date: 20080522
  Receipt Date: 20080515
  Transmission Date: 20081010
  Serious: Yes (Other)
  Sender: FDA-Public Use
  Company Number: US-PFIZER INC-2008042184

PATIENT
  Sex: Female
  Weight: 83.9 kg

DRUGS (12)
  1. LIPITOR [Suspect]
     Indication: BLOOD CHOLESTEROL INCREASED
  2. PLAVIX [Concomitant]
  3. ISOSORBIDE DINITRATE [Concomitant]
  4. FUROSEMIDE [Concomitant]
  5. MIRAPEX [Concomitant]
  6. LEXAPRO [Concomitant]
  7. POTASSIUM CHLORIDE [Concomitant]
  8. GABAPENTIN [Concomitant]
  9. XALATAN [Concomitant]
  10. MIRALAX [Concomitant]
  11. PREVACID [Concomitant]
  12. AMBIEN [Concomitant]

REACTIONS (6)
  - ARRHYTHMIA [None]
  - BODY HEIGHT DECREASED [None]
  - MUSCLE TIGHTNESS [None]
  - MUSCULAR WEAKNESS [None]
  - PARKINSONISM [None]
  - TREMOR [None]
